FAERS Safety Report 9411492 (Version 1)
Quarter: 2013Q3

REPORT INFORMATION
  Report Type: Spontaneous
  Country: US (occurrence: None)
  Receive Date: 20130718
  Receipt Date: 20130718
  Transmission Date: 20140515
  Serious: Yes (Disabling)
  Sender: FDA-Public Use
  Company Number: None

PATIENT
  Age: 76 Year
  Sex: Female

DRUGS (4)
  1. GABAPENTIN 300MG CAPSULE- [Suspect]
     Indication: NEUROPATHY PERIPHERAL
     Route: 048
     Dates: start: 20120927, end: 20130504
  2. ULTRAM ER [Concomitant]
  3. PRIMIDONE [Concomitant]
  4. CELEBREX [Concomitant]

REACTIONS (5)
  - Emotional disorder [None]
  - Crying [None]
  - Speech disorder [None]
  - Swollen tongue [None]
  - Pharyngeal oedema [None]
